FAERS Safety Report 10191476 (Version 3)
Quarter: 2014Q3

REPORT INFORMATION
  Report Type: Spontaneous
  Country: JP (occurrence: JP)
  Receive Date: 20140523
  Receipt Date: 20140728
  Transmission Date: 20150326
  Serious: Yes (Other)
  Sender: FDA-Public Use
  Company Number: JP-ELI_LILLY_AND_COMPANY-JP201405006009

PATIENT
  Age: 91 Year
  Sex: Female

DRUGS (10)
  1. ALENDRONATE [Concomitant]
     Active Substance: ALENDRONATE SODIUM
     Indication: OSTEOPOROSIS
     Dosage: UNK
     Dates: end: 20140518
  2. AMLODIPINE [Concomitant]
     Active Substance: AMLODIPINE BESYLATE
  3. FLUITRAN [Concomitant]
     Active Substance: TRICHLORMETHIAZIDE
  4. CALFINA [Concomitant]
     Indication: OSTEOPOROSIS
     Route: 048
  5. ALDACTONE [Concomitant]
     Active Substance: SPIRONOLACTONE
  6. VASOLAN                            /00014302/ [Concomitant]
     Active Substance: VERAPAMIL HYDROCHLORIDE
  7. LOXONIN [Concomitant]
     Active Substance: LOXOPROFEN SODIUM
  8. FORTEO [Suspect]
     Active Substance: TERIPARATIDE
     Indication: OSTEOPOROSIS
     Dosage: UNK
     Route: 058
     Dates: start: 20140508, end: 20140509
  9. DEPAS [Concomitant]
     Active Substance: ETIZOLAM
  10. GASTER [Concomitant]
     Active Substance: FAMOTIDINE

REACTIONS (2)
  - Blood pressure decreased [Unknown]
  - Loss of consciousness [Recovered/Resolved]

NARRATIVE: CASE EVENT DATE: 20140510
